FAERS Safety Report 8607340-0 (Version None)
Quarter: 2012Q3

REPORT INFORMATION
  Report Type: 
  Country: None (occurrence: None)
  Receive Date: 20120803
  Receipt Date: 20120723
  Transmission Date: 20120928
  Serious: Yes (Hospitalization)
  Sender: FDA-Public Use
  Company Number: DSA_58709_2012

PATIENT
  Age: 90 Year
  Sex: Female

DRUGS (4)
  1. DILTIAZEM HYDROCHLORIDE [Suspect]
     Indication: HYPERTENSION
     Dosage: (200 MG QD ORAL)
     Route: 048
     Dates: start: 19980101, end: 20120517
  2. CORDARONE [Suspect]
     Indication: ATRIAL FIBRILLATION
     Dosage: (200 MG QD ORAL)
     Route: 048
     Dates: start: 20100101, end: 20120517
  3. TEMESTA /00273201/ [Concomitant]
  4. ZOLTUM /00661201/ [Concomitant]

REACTIONS (11)
  - TORSADE DE POINTES [None]
  - VOMITING [None]
  - CARDIAC ARREST [None]
  - OVERDOSE [None]
  - BRADYCARDIA [None]
  - FALL [None]
  - HYPOKALAEMIA [None]
  - ELECTROCARDIOGRAM QT PROLONGED [None]
  - MALAISE [None]
  - VENTRICULAR EXTRASYSTOLES [None]
  - GENERAL PHYSICAL HEALTH DETERIORATION [None]
